FAERS Safety Report 6077862-8 (Version None)
Quarter: 2009Q1

REPORT INFORMATION
  Report Type: 
  Country: None (occurrence: None)
  Receive Date: 20090213
  Receipt Date: 20040930
  Transmission Date: 20090719
  Serious: Yes (Hospitalization)
  Sender: FDA-Public Use
  Company Number: US-BAXTER-2009BH001984

PATIENT
  Age: 4 Year

DRUGS (2)
  1. MILRINONE [Suspect]
     Indication: DRUG USE FOR UNKNOWN INDICATION
     Route: 042
     Dates: start: 20040907, end: 20040911
  2. MILRINONE [Suspect]
     Route: 042
     Dates: start: 20040911, end: 20040912

REACTIONS (2)
  - MEDICATION ERROR [None]
  - OVERDOSE [None]
